FAERS Safety Report 24711994 (Version 1)
Quarter: 2024Q4

REPORT INFORMATION
  Report Type: Report from Study
  Country: US (occurrence: US)
  Receive Date: 20241209
  Receipt Date: 20241209
  Transmission Date: 20250115
  Serious: No
  Sender: DR REDDYS
  Company Number: US-DRL-USA-CLI/USA/24/0017952

PATIENT
  Age: 2 Year
  Sex: Male

DRUGS (3)
  1. JAVYGTOR [Suspect]
     Active Substance: SAPROPTERIN DIHYDROCHLORIDE
     Indication: Hyperphenylalaninaemia
     Dosage: MIX THREE 100 MG POWDER PACKETS IN 30 ML OF WATER JUICE OR FORMULA AND GIVE 25 ML DAILY WITH FOOD, T
     Route: 065
  2. TRIAMCINOLONE ACETONIDE [Concomitant]
     Active Substance: TRIAMCINOLONE ACETONIDE
     Indication: Product used for unknown indication
     Route: 065
  3. HYDROXYZINE HYDROCHLORIDE [Concomitant]
     Active Substance: HYDROXYZINE HYDROCHLORIDE
     Indication: Product used for unknown indication
     Dosage: 10 MG/5 ML
     Route: 065

REACTIONS (1)
  - Exposure to toxic agent [Unknown]

NARRATIVE: CASE EVENT DATE: 20241111
